FAERS Safety Report 9553099 (Version 1)
Quarter: 2013Q3

REPORT INFORMATION
  Report Type: Spontaneous
  Country: US (occurrence: None)
  Receive Date: 20130724
  Receipt Date: 20130724
  Transmission Date: 20140515
  Serious: Yes (Disabling)
  Sender: FDA-Public Use
  Company Number: PHEH2012US019132

PATIENT
  Age: 56 Year
  Sex: Female
  Weight: 177.6 kg

DRUGS (11)
  1. GLEEVEC [Suspect]
     Indication: CHRONIC MYELOID LEUKAEMIA
     Route: 048
     Dates: start: 20110725, end: 20120829
  2. VITAMIN B GROUP [Concomitant]
  3. CALCIUM CITRATE [Concomitant]
  4. FISH OIL [Concomitant]
  5. VITAMIN D (ERGOCALCIFEROL) [Concomitant]
  6. CENTRUM SILVER (ASCORBIC ACID, CALCIUM, MINERAL NOS, RETINOL, TOCOPHERYL ACETATE, VITAMIN B NOS, VITAMINS NOS, ZINC) [Concomitant]
  7. HYDROCHLOROTHIAZIDE [Concomitant]
  8. DEXLANSOPRAZOLE [Concomitant]
  9. XALATAN (LATANOPROST) [Concomitant]
  10. VITAMIN A (RETINOL) [Concomitant]
  11. HCT (HYDROCHLOROTHIAZIDE) [Concomitant]

REACTIONS (4)
  - Fluid retention [None]
  - Eye swelling [None]
  - Oedema peripheral [None]
  - Arthralgia [None]
